FAERS Safety Report 10497926 (Version 1)
Quarter: 2014Q4

REPORT INFORMATION
  Report Type: Spontaneous
  Country: US (occurrence: None)
  Receive Date: 20141002
  Receipt Date: 20141002
  Transmission Date: 20150528
  Serious: Yes (Hospitalization)
  Sender: FDA-Public Use
  Company Number: FK201403839

PATIENT
  Age: 60 Year
  Sex: Female

DRUGS (2)
  1. IFOSFAMIDE (MANUFACTURER UNKNOWN) (IFOSFAMIDE) (IFOSFAMIDE) [Suspect]
     Active Substance: IFOSFAMIDE
     Indication: SPINDLE CELL SARCOMA
     Dosage: 24-HOUR INFUSION
  2. MESNA (MESNA) [Concomitant]
     Active Substance: MESNA

REACTIONS (10)
  - Status epilepticus [None]
  - Electroencephalogram abnormal [None]
  - Respiratory failure [None]
  - Blepharospasm [None]
  - Lethargy [None]
  - Confusional state [None]
  - Grimacing [None]
  - Mental status changes [None]
  - Unresponsive to stimuli [None]
  - Myoclonus [None]
